FAERS Safety Report 5849781-0 (Version None)
Quarter: 2008Q3

REPORT INFORMATION
  Report Type: 
  Country: None (occurrence: None)
  Receive Date: 20080815
  Receipt Date: 20080808
  Transmission Date: 20090109
  Serious: No
  Sender: FDA-Public Use
  Company Number: 003604

PATIENT
  Age: 29 Year
  Sex: Female

DRUGS (8)
  1. BUSULFEX [Suspect]
     Indication: STEM CELL TRANSPLANT
     Dosage: 11 ML, INTRAVENOUS,  22 ML, DAILY DOSE; INTRAVENOUS
     Route: 042
     Dates: start: 20070222, end: 20070222
  2. BUSULFEX [Suspect]
     Indication: STEM CELL TRANSPLANT
     Dosage: 11 ML, INTRAVENOUS,  22 ML, DAILY DOSE; INTRAVENOUS
     Route: 042
     Dates: start: 20070223, end: 20070225
  3. BUSULFEX [Suspect]
     Indication: STEM CELL TRANSPLANT
     Dosage: 11 ML, INTRAVENOUS,  22 ML, DAILY DOSE; INTRAVENOUS
     Route: 042
     Dates: start: 20070226, end: 20070226
  4. CYCLOPHOSPHAMIDE [Concomitant]
  5. PHENYTOIN [Concomitant]
  6. FILGRASTIM (FILGRASTIM) [Concomitant]
  7. METHOTREXATE [Concomitant]
  8. TACROLIMUS [Concomitant]

REACTIONS (7)
  - ACUTE GRAFT VERSUS HOST DISEASE [None]
  - ACUTE MYELOID LEUKAEMIA RECURRENT [None]
  - ANOREXIA [None]
  - DIARRHOEA [None]
  - MALAISE [None]
  - PHARYNGITIS [None]
  - STOMATITIS [None]
